FAERS Safety Report 9206016 (Version 1)
Quarter: 2013Q1

REPORT INFORMATION
  Report Type: Spontaneous
  Country: US (occurrence: None)
  Receive Date: 20120731
  Receipt Date: 20120731
  Transmission Date: 20140127
  Serious: Yes (Other)
  Sender: FDA-Public Use
  Company Number: ADE12-070

PATIENT
  Age: 94 Year
  Sex: Female

DRUGS (2)
  1. HEPARIN SODIUM [Suspect]
     Indication: THROMBOSIS PROPHYLAXIS
     Dosage: 5000 UNITS
     Route: 058
  2. ASPIRIN [Concomitant]

REACTIONS (2)
  - Haemorrhage [None]
  - Haematoma [None]
